FAERS Safety Report 5114802-X (Version None)
Quarter: 2006Q3

REPORT INFORMATION
  Report Type: 
  Country: None (occurrence: None)
  Receive Date: 20060922
  Receipt Date: 20060922
  Transmission Date: 20061208
  Serious: Yes (Death)
  Sender: FDA-Public Use
  Company Number: None

PATIENT
  Age: 66 Year
  Sex: Female
  Weight: 73.9363 kg

DRUGS (6)
  1. TARCEVA (ERLOTINIB) [Suspect]
     Indication: BREAST CANCER METASTATIC
     Dosage: 100 MG
     Dates: start: 20060905, end: 20060912
  2. RAD001 (EVEROLIMUS) [Suspect]
     Indication: BREAST CANCER METASTATIC
     Dosage: 5 MG
     Dates: start: 20060905, end: 20060912
  3. OXYCODONE HCL [Concomitant]
  4. OXYCOD/APAP [Concomitant]
  5. TUMS [Concomitant]
  6. SENOKOT [Concomitant]

REACTIONS (13)
  - APNOEA [None]
  - CARDIAC ARREST [None]
  - DYSPNOEA [None]
  - FATIGUE [None]
  - HYPOTENSION [None]
  - MASS [None]
  - MENTAL STATUS CHANGES [None]
  - OBSTRUCTIVE AIRWAYS DISORDER [None]
  - OXYGEN SATURATION DECREASED [None]
  - PLEURAL EFFUSION [None]
  - PULMONARY EMBOLISM [None]
  - TACHYCARDIA [None]
  - TACHYPNOEA [None]
